FAERS Safety Report 16231383 (Version 1)
Quarter: 2019Q2

REPORT INFORMATION
  Report Type: Spontaneous
  Country: US (occurrence: US)
  Receive Date: 20190424
  Receipt Date: 20190424
  Transmission Date: 20190711
  Serious: No
  Sender: FDA-Public Use
  Company Number: US-TEVA-2019-US-1038583

PATIENT
  Age: 40 Year
  Sex: Female

DRUGS (2)
  1. HYDROXYZINE [Suspect]
     Active Substance: HYDROXYZINE HYDROCHLORIDE
     Indication: BIPOLAR DISORDER
     Dosage: RECEIVED ALONE FOR 3-5 DAYS. LATER, RECEIVED IN COMBINATION WITH ARIPIPRAZOLE
     Route: 065
  2. ARPIPRAZOLE [Suspect]
     Active Substance: ARIPIPRAZOLE
     Indication: BIPOLAR DISORDER
     Route: 065

REACTIONS (2)
  - Suppressed lactation [Recovered/Resolved]
  - Maternal exposure during breast feeding [Unknown]
